FAERS Safety Report 24053949 (Version 1)
Quarter: 2024Q3

REPORT INFORMATION
  Report Type: Spontaneous
  Country: GB (occurrence: GB)
  Receive Date: 20240705
  Receipt Date: 20240705
  Transmission Date: 20241017
  Serious: No
  Sender: ALKEM
  Company Number: None

PATIENT
  Age: 58 Year
  Sex: Female
  Weight: 69 kg

DRUGS (13)
  1. SOLIFENACIN [Suspect]
     Active Substance: SOLIFENACIN
     Indication: Product used for unknown indication
     Dosage: UNK, QD (ONE TO BE TAKEN EACH DAY)
     Route: 065
     Dates: start: 20230915
  2. CARBOCYSTEINE [Concomitant]
     Active Substance: CARBOCYSTEINE
     Indication: Product used for unknown indication
     Dosage: UNK, TID (TWO TO BE TAKEN THREE TIMES A DAY)
     Route: 065
     Dates: start: 20231113
  3. CLARITHROMYCIN [Concomitant]
     Active Substance: CLARITHROMYCIN
     Indication: Asthma
     Dosage: UNK, BID (ONE TO BE TAKEN TWICE A DAY)
     Route: 065
     Dates: start: 20231024, end: 20231122
  4. DOXYCYCLINE [Concomitant]
     Active Substance: DOXYCYCLINE\DOXYCYCLINE HYCLATE
     Indication: Product used for unknown indication
     Dosage: UNK (TWO TO BE TAKEN ON THE FIRST DAY THEN ONE TO BE TAKEN EACH DAY)
     Route: 065
     Dates: start: 20230908, end: 20231021
  5. HYDROXOCOBALAMIN [Concomitant]
     Active Substance: HYDROXOCOBALAMIN
     Indication: Product used for unknown indication
     Dosage: 1 DOSAGE FORM (1 AMPULE EVERY 12 WEEKS)
     Route: 065
     Dates: start: 20230908, end: 20231021
  6. LIOTHYRONINE [Concomitant]
     Active Substance: LIOTHYRONINE
     Indication: Product used for unknown indication
     Dosage: UNK (ONE TO BE TAKEN WITH DOSE IN BLISTER PACK)
     Route: 065
     Dates: start: 20230915
  7. LIOTHYRONINE [Concomitant]
     Active Substance: LIOTHYRONINE
     Dosage: 40 MICROGRAM, BID (TWO TO BE TAKEN DAILY)
     Route: 065
     Dates: start: 20231121
  8. CARBOCYSTEINE [Concomitant]
     Active Substance: CARBOCYSTEINE
     Indication: Product used for unknown indication
     Dosage: UNK, TID (TWO TO BE TAKEN THREE TIMES A DAY)
     Route: 065
     Dates: start: 20230929, end: 20231113
  9. PREDNISOLONE [Concomitant]
     Active Substance: PREDNISOLONE
     Indication: Asthma
     Dosage: UNK (FIVE TO BE TAKEN EACH DAY REDUCEING BY 5MG EVERY 3 DAYS TO NIL)
     Route: 065
     Dates: start: 20230908, end: 20231021
  10. PREDNISOLONE [Concomitant]
     Active Substance: PREDNISOLONE
     Dosage: UNK (EIGHT TO BE TAKEN EACH DAY)
     Route: 065
     Dates: start: 20231024, end: 20231122
  11. TEMAZEPAM [Concomitant]
     Active Substance: TEMAZEPAM
     Indication: Product used for unknown indication
     Dosage: UNK, HS (ONE AT NIGHT IN ADDITION TO 20MG WHEN STRUGGLING WITH INSOMNIA)
     Route: 065
     Dates: start: 20230929
  12. TEMAZEPAM [Concomitant]
     Active Substance: TEMAZEPAM
     Dosage: UNK, HS (ONE TO BE TAKEN AT NIGHT)
     Route: 065
     Dates: start: 20230908
  13. TRIMETHOPRIM [Concomitant]
     Active Substance: TRIMETHOPRIM
     Indication: Product used for unknown indication
     Dosage: UNK, BID (ONE TO BE TAKEN TWICE A DAY)
     Route: 065
     Dates: start: 20230915, end: 20231014

REACTIONS (3)
  - Dry mouth [Recovered/Resolved]
  - Headache [Recovered/Resolved]
  - Nausea [Recovered/Resolved]

NARRATIVE: CASE EVENT DATE: 20231107
